FAERS Safety Report 8102920-3 (Version None)
Quarter: 2012Q1

REPORT INFORMATION
  Report Type: 
  Country: None (occurrence: None)
  Receive Date: 20120127
  Receipt Date: 20120113
  Transmission Date: 20120608
  Serious: Yes (Hospitalization)
  Sender: FDA-Public Use
  Company Number: FR-2012-0294

PATIENT
  Age: 53 Year
  Sex: Female

DRUGS (3)
  1. FLUOROURACIL [Suspect]
     Indication: BREAST CANCER
     Dates: start: 20090101, end: 20110901
  2. PAMIDRONATE DISODIUM [Concomitant]
     Indication: PRODUCT USED FOR UNKNOWN INDICATION
     Dates: start: 20090101, end: 20110901
  3. NAVELBINE [Suspect]
     Indication: BREAST CANCER
     Dates: start: 20090101, end: 20110901

REACTIONS (4)
  - FOCAL SEGMENTAL GLOMERULOSCLEROSIS [None]
  - NEPHROTIC SYNDROME [None]
  - HYPERTENSION [None]
  - HAEMODIALYSIS [None]
